FAERS Safety Report 8586981-3 (Version None)
Quarter: 2012Q3

REPORT INFORMATION
  Report Type: 
  Country: None (occurrence: None)
  Receive Date: 20120810
  Receipt Date: 20120809
  Transmission Date: 20120928
  Serious: Yes (Hospitalization, Other)
  Sender: FDA-Public Use
  Company Number: AU-AMGEN-AUSCT2012028669

PATIENT
  Age: 75 Year
  Sex: Female
  Weight: 50 kg

DRUGS (8)
  1. DENOSUMAB [Suspect]
     Indication: OSTEOPOROSIS POSTMENOPAUSAL
     Dosage: UNK UNK, Q6MO
     Route: 058
     Dates: start: 20080122
  2. AVAPRO [Concomitant]
     Dosage: UNK UNK, PRN
     Route: 048
     Dates: start: 20111201
  3. GLYBURIDE [Concomitant]
     Dosage: 2.5 MG, BID
     Route: 048
     Dates: start: 19850101
  4. VYTORIN [Concomitant]
     Dosage: UNK UNK, QD
     Route: 048
     Dates: start: 20110601
  5. METFORMIN HCL [Concomitant]
     Dosage: UNK
     Route: 048
     Dates: start: 20080901
  6. CALCIUM [Concomitant]
     Dosage: 600 MG, BID
     Route: 048
     Dates: start: 20050101
  7. OMEPRAZOLE (PRISOLEC) [Concomitant]
     Indication: GASTROOESOPHAGEAL REFLUX DISEASE
     Dosage: 60 MG, PRN
     Route: 048
     Dates: start: 20020101
  8. OSTELIN [Concomitant]
     Dosage: 1000 IU, QD
     Route: 048
     Dates: start: 20040901

REACTIONS (3)
  - OESOPHAGITIS [None]
  - STOMATITIS [None]
  - OESOPHAGEAL SQUAMOUS CELL CARCINOMA [None]
